FAERS Safety Report 13341894 (Version 1)
Quarter: 2017Q1

REPORT INFORMATION
  Report Type: Spontaneous
  Country: TR (occurrence: TR)
  Receive Date: 20170316
  Receipt Date: 20170316
  Transmission Date: 20170428
  Serious: Yes (Other)
  Sender: FDA-Public Use
  Company Number: TR-EMD SERONO-8147577

PATIENT
  Age: 46 Year
  Sex: Female

DRUGS (1)
  1. CLADRIBINE. [Suspect]
     Active Substance: CLADRIBINE
     Indication: RELAPSING-REMITTING MULTIPLE SCLEROSIS
     Route: 048
     Dates: start: 20090722, end: 20100719

REACTIONS (1)
  - Throat cancer [Unknown]

NARRATIVE: CASE EVENT DATE: 201509
